FAERS Safety Report 7905959-3 (Version None)
Quarter: 2011Q4

REPORT INFORMATION
  Report Type: 
  Country: None (occurrence: None)
  Receive Date: 20111110
  Receipt Date: 20111104
  Transmission Date: 20120403
  Serious: Yes (Other)
  Sender: FDA-Public Use
  Company Number: GXKR2011DE003225

PATIENT

DRUGS (1)
  1. AMOXICILLIN AND CLAVULANATE POTASSIUM [Suspect]
     Indication: ABSCESS
     Dosage: 1 DF, TID
     Route: 065
     Dates: start: 20110506, end: 20110513

REACTIONS (3)
  - RASH PUSTULAR [None]
  - TONGUE PARALYSIS [None]
  - HYPOAESTHESIA ORAL [None]
